FAERS Safety Report 19317050 (Version 2)
Quarter: 2021Q2

REPORT INFORMATION
  Report Type: Report from Study
  Country: PL (occurrence: PL)
  Receive Date: 20210527
  Receipt Date: 20210604
  Transmission Date: 20210717
  Serious: Yes (Hospitalization)
  Sender: FDA-Public Use
  Company Number: PL-ROCHE-2832074

PATIENT
  Age: 49 Year
  Sex: Female
  Weight: 74 kg

DRUGS (43)
  1. OCRELIZUMAB. [Suspect]
     Active Substance: OCRELIZUMAB
     Dosage: WEEK 24
     Route: 042
     Dates: start: 20120808, end: 20120808
  2. OCRELIZUMAB. [Suspect]
     Active Substance: OCRELIZUMAB
     Dosage: WEEK 72
     Route: 042
     Dates: start: 20130708, end: 20130708
  3. OCRELIZUMAB. [Suspect]
     Active Substance: OCRELIZUMAB
     Dosage: OLE?WEEK 24
     Route: 042
     Dates: start: 20140623, end: 20140623
  4. OCRELIZUMAB. [Suspect]
     Active Substance: OCRELIZUMAB
     Dosage: OLE?WEEK 336
     Route: 042
     Dates: start: 20200619, end: 20200619
  5. DIPHENHYDRAMINE. [Concomitant]
     Active Substance: DIPHENHYDRAMINE
     Dosage: BASELINE (WEEK 1), SUBSEQUENT DOSE RECEIVED ON: (WEEK 24, 08/AUG/2012), (WEEK 72, 08/JUL/2013), (OLE
     Dates: start: 20120222
  6. APAP NOC [Concomitant]
     Dosage: OLE?WEEK 288?2 TABLET
     Dates: start: 20190716
  7. PERFALGAN [Concomitant]
     Active Substance: ACETAMINOPHEN
     Indication: COVID-19
     Dates: start: 20210415, end: 20210415
  8. APAP NOC [Concomitant]
     Dosage: OLE?WEEK 336?2 TABLET
     Dates: start: 20200619
  9. YAZ [Concomitant]
     Active Substance: DROSPIRENONE\ETHINYL ESTRADIOL
     Indication: CONTRACEPTION
     Dosage: 1 TABLET
     Dates: start: 20160710
  10. KALIPOZ [Concomitant]
     Active Substance: POTASSIUM CHLORIDE
     Indication: COVID-19
     Dosage: 1 TABLET
     Dates: start: 20210416, end: 20210419
  11. OCRELIZUMAB. [Suspect]
     Active Substance: OCRELIZUMAB
     Dosage: OLE?WEEK 288
     Route: 042
     Dates: start: 20190716, end: 20190716
  12. OCRELIZUMAB. [Suspect]
     Active Substance: OCRELIZUMAB
     Dosage: OLE?WEEK 360
     Route: 042
     Dates: start: 20201214, end: 20201214
  13. METHYLPREDNISOLONE. [Concomitant]
     Active Substance: METHYLPREDNISOLONE
     Dosage: BASELINE (WEEK 1), SUBSEQUENT DOSE RECEIVED ON: (WEEK 24, 08/AUG/2012), (WEEK 72, 08/JUL/2013), (OLE
     Dates: start: 20120222, end: 20120222
  14. OCRELIZUMAB. [Suspect]
     Active Substance: OCRELIZUMAB
     Dosage: OLE?WEEK 2
     Route: 042
     Dates: start: 20140120, end: 20140120
  15. OCRELIZUMAB. [Suspect]
     Active Substance: OCRELIZUMAB
     Dosage: OLE?WEEK 72
     Route: 042
     Dates: start: 20150525, end: 20150525
  16. OCRELIZUMAB. [Suspect]
     Active Substance: OCRELIZUMAB
     Dosage: OLE?WEEK 120
     Route: 042
     Dates: start: 20160425, end: 20160425
  17. OCRELIZUMAB. [Suspect]
     Active Substance: OCRELIZUMAB
     Dosage: OLE?WEEK 312
     Route: 042
     Dates: start: 20200115, end: 20200115
  18. PARACETAMOL [Concomitant]
     Active Substance: ACETAMINOPHEN
     Dosage: BASELINE (WEEK 1), SUBSEQUENT DOSE RECEIVED ON: (WEEK 24, 08/AUG/2012), (WEEK 72, 08/JUL/2013), (OLE
     Dates: start: 20120222
  19. KALIPOZ [Concomitant]
     Active Substance: POTASSIUM CHLORIDE
     Dosage: 1 TABLET
     Dates: start: 20210420, end: 20210424
  20. OCRELIZUMAB. [Suspect]
     Active Substance: OCRELIZUMAB
     Dosage: DELAYED DOSING VISIT 01/APR/2017
     Route: 042
     Dates: start: 20170401, end: 20170401
  21. OCRELIZUMAB. [Suspect]
     Active Substance: OCRELIZUMAB
     Dosage: OLE?WEEK 192
     Route: 042
     Dates: start: 20170911, end: 20170911
  22. APAP NOC [Concomitant]
     Dosage: OLE?WEEK 312?2 TABLET
     Dates: start: 20200115
  23. DEXAVEN [Concomitant]
     Active Substance: DEXAMETHASONE
     Dates: start: 20210424, end: 20210424
  24. OCRELIZUMAB. [Suspect]
     Active Substance: OCRELIZUMAB
     Dosage: DELAYED DOSING VISIT 21/MAR/2012
     Route: 042
     Dates: start: 20120321, end: 20120321
  25. PLACEBO [Suspect]
     Active Substance: UNSPECIFIED INGREDIENT
     Route: 058
     Dates: start: 20131230, end: 20140103
  26. OCRELIZUMAB. [Suspect]
     Active Substance: OCRELIZUMAB
     Dosage: OLE?WEEK 144
     Route: 042
     Dates: start: 20161010, end: 20161010
  27. OCRELIZUMAB. [Suspect]
     Active Substance: OCRELIZUMAB
     Dosage: OLE?WEEK 216
     Route: 042
     Dates: start: 20180226, end: 20180226
  28. OCRELIZUMAB. [Suspect]
     Active Substance: OCRELIZUMAB
     Dosage: DELAYED DOSING VISIT 04/FEB/2013
     Route: 042
     Dates: start: 20130204, end: 20130204
  29. LEVOCETIRIZINI DIHYDROCHLORIDUM [Concomitant]
     Dates: start: 20120416
  30. BIOGAIA [Concomitant]
     Active Substance: LACTOBACILLUS REUTERI
     Indication: COVID-19
     Dosage: 1 CAPSULE
     Dates: start: 20210415, end: 20210424
  31. BIOTRAXON [Concomitant]
     Indication: COVID-19
     Dates: start: 20210415, end: 20210424
  32. DEXAVEN [Concomitant]
     Active Substance: DEXAMETHASONE
     Indication: COVID-19
     Dates: start: 20210415, end: 20210419
  33. DEXAVEN [Concomitant]
     Active Substance: DEXAMETHASONE
     Dates: start: 20210420, end: 20210423
  34. OCRELIZUMAB. [Suspect]
     Active Substance: OCRELIZUMAB
     Indication: RELAPSING-REMITTING MULTIPLE SCLEROSIS
     Dosage: BASELINE (WEEK 1)
     Route: 042
     Dates: start: 20120222, end: 20120222
  35. PLACEBO [Suspect]
     Active Substance: UNSPECIFIED INGREDIENT
     Indication: RELAPSING-REMITTING MULTIPLE SCLEROSIS
     Route: 058
     Dates: start: 20120222, end: 20120222
  36. OCRELIZUMAB. [Suspect]
     Active Substance: OCRELIZUMAB
     Indication: RELAPSING-REMITTING MULTIPLE SCLEROSIS
     Dosage: OLE?WEEK 0
     Route: 042
     Dates: start: 20140106, end: 20140106
  37. OCRELIZUMAB. [Suspect]
     Active Substance: OCRELIZUMAB
     Dosage: OLE?WEEK 48
     Route: 042
     Dates: start: 20141208, end: 20141208
  38. OCRELIZUMAB. [Suspect]
     Active Substance: OCRELIZUMAB
     Dosage: OLE?WEEK 96
     Route: 042
     Dates: start: 20151106, end: 20151106
  39. OCRELIZUMAB. [Suspect]
     Active Substance: OCRELIZUMAB
     Dosage: OLE?WEEK 240
     Route: 042
     Dates: start: 20180810, end: 20180810
  40. OCRELIZUMAB. [Suspect]
     Active Substance: OCRELIZUMAB
     Dosage: OLE?WEEK 264
     Route: 042
     Dates: start: 20190130, end: 20190130
  41. CLEXANE [Concomitant]
     Active Substance: ENOXAPARIN SODIUM
     Indication: COVID-19
     Dates: start: 20210415, end: 20210423
  42. THIOCODIN (POLAND) [Concomitant]
     Indication: COVID-19
     Dosage: 1 TABLET
     Dates: start: 20210415, end: 20210419
  43. ZOFENIL [Concomitant]
     Active Substance: ZOFENOPRIL
     Indication: COVID-19
     Dates: start: 20210415, end: 20210424

REACTIONS (1)
  - Pneumonia [Not Recovered/Not Resolved]

NARRATIVE: CASE EVENT DATE: 20210514
